FAERS Safety Report 4284835-4 (Version None)
Quarter: 2004Q1

REPORT INFORMATION
  Report Type: 
  Country: None (occurrence: None)
  Receive Date: 20040204
  Receipt Date: 20040112
  Transmission Date: 20041129
  Serious: Yes (Hospitalization)
  Sender: FDA-Public Use
  Company Number: DE-BRISTOL-MYERS SQUIBB COMPANY-12477634

PATIENT
  Age: 66 Year
  Sex: Female
  Weight: 100 kg

DRUGS (9)
  1. KARVEZIDE TABS 300MG/12.5MG [Suspect]
     Indication: HYPERTENSION
     Route: 048
     Dates: start: 19990305, end: 20030915
  2. ALLOPURINOL [Concomitant]
     Dates: start: 20000628, end: 20030915
  3. ASPIRIN [Concomitant]
     Dates: start: 19990219, end: 20030915
  4. DIGITOXIN [Concomitant]
     Dates: start: 19990219, end: 20030915
  5. EBRANTIL [Concomitant]
     Dates: start: 20030823
  6. GLYBURIDE [Concomitant]
     Dates: start: 19990107
  7. METFORMIN HCL [Concomitant]
     Dates: start: 19990107
  8. METOPROLOL [Concomitant]
     Dates: start: 19990219
  9. AMLODIPINE BESYLATE [Concomitant]
     Dates: start: 20020116

REACTIONS (8)
  - ASTHENIA [None]
  - BACK PAIN [None]
  - CLOSTRIDIUM COLITIS [None]
  - ELECTROCARDIOGRAM REPOLARISATION ABNORMALITY [None]
  - FALL [None]
  - HYPERCALCAEMIA [None]
  - MYALGIA [None]
  - PAIN [None]
